FAERS Safety Report 4965786-6 (Version None)
Quarter: 2006Q2

REPORT INFORMATION
  Report Type: 
  Country: None (occurrence: None)
  Receive Date: 20060406
  Receipt Date: 20060406
  Transmission Date: 20061013
  Serious: Yes (Other)
  Sender: FDA-Public Use
  Company Number: None

PATIENT
  Age: 65 Year
  Sex: Male
  Weight: 89.8122 kg

DRUGS (2)
  1. CEFUROXIME [Suspect]
     Indication: UPPER RESPIRATORY TRACT INFECTION
     Dosage: 500 MG TWICE DAILY
     Dates: start: 20060327
  2. CEFUROXIME [Suspect]
     Indication: UPPER RESPIRATORY TRACT INFECTION
     Dosage: 500 MG TWICE DAILY
     Dates: start: 20060328

REACTIONS (3)
  - BURNING SENSATION [None]
  - FEELING HOT [None]
  - RASH [None]
